FAERS Safety Report 6047381-3 (Version None)
Quarter: 2009Q1

REPORT INFORMATION
  Report Type: 
  Country: None (occurrence: None)
  Receive Date: 20090122
  Receipt Date: 20090120
  Transmission Date: 20090719
  Serious: Yes (Death, Life-Threatening, Hospitalization, Other)
  Sender: FDA-Public Use
  Company Number: US-ROXANE LABORATORIES, INC.-2008-RO-00188RO

PATIENT
  Sex: Male
  Weight: 66 kg

DRUGS (7)
  1. METHADONE HCL [Suspect]
     Indication: BACK PAIN
     Dosage: 80MG
     Route: 048
  2. METHADONE HCL [Suspect]
     Dosage: 40MG
     Route: 048
  3. METHADONE HCL [Suspect]
     Dates: start: 20060703
  4. METHADONE HCL [Suspect]
     Dosage: 20MG
     Route: 048
     Dates: start: 20060626
  5. CELEXA [Suspect]
     Dosage: 20MG
     Route: 048
  6. LORTAB [Suspect]
     Indication: BACK PAIN
     Route: 048
  7. MORPHINE [Concomitant]

REACTIONS (31)
  - ACUTE RESPIRATORY DISTRESS SYNDROME [None]
  - ANOXIC ENCEPHALOPATHY [None]
  - ASTHENIA [None]
  - BETA HAEMOLYTIC STREPTOCOCCAL INFECTION [None]
  - BLOOD CANNABINOIDS [None]
  - BRONCHOPNEUMONIA [None]
  - CONCUSSION [None]
  - CONTUSION [None]
  - DIZZINESS [None]
  - ENCEPHALOPATHY [None]
  - ESCHERICHIA BACTERAEMIA [None]
  - FAECAL INCONTINENCE [None]
  - GALLBLADDER DISORDER [None]
  - HEADACHE [None]
  - HEPATOMEGALY [None]
  - HYPERVENTILATION [None]
  - HYPOTENSION [None]
  - MIGRAINE [None]
  - OVERDOSE [None]
  - PLEURAL EFFUSION [None]
  - PNEUMONIA ASPIRATION [None]
  - RESPIRATION ABNORMAL [None]
  - RESPIRATORY ARREST [None]
  - RESPIRATORY FAILURE [None]
  - RESTLESSNESS [None]
  - SEPSIS [None]
  - SOMNOLENCE [None]
  - STAPHYLOCOCCAL BACTERAEMIA [None]
  - THROMBOCYTOPENIA [None]
  - TRANSIENT ISCHAEMIC ATTACK [None]
  - VOMITING [None]
